FAERS Safety Report 13398774 (Version 1)
Quarter: 2017Q2

REPORT INFORMATION
  Report Type: Report from Study
  Country: US (occurrence: US)
  Receive Date: 20170403
  Receipt Date: 20170403
  Transmission Date: 20170830
  Serious: No
  Sender: FDA-Public Use
  Company Number: US-AMGEN-USASL2017046726

PATIENT
  Age: 58 Year
  Sex: Female

DRUGS (1)
  1. ENBREL [Suspect]
     Active Substance: ETANERCEPT
     Indication: PRODUCT USED FOR UNKNOWN INDICATION
     Dosage: 50 MG, UNK
     Route: 065
     Dates: start: 2016

REACTIONS (6)
  - Pain [Unknown]
  - Red blood cell sedimentation rate increased [Unknown]
  - Underdose [Unknown]
  - Condition aggravated [Unknown]
  - Sleep disorder [Unknown]
  - Feeling abnormal [Unknown]

NARRATIVE: CASE EVENT DATE: 2017
